FAERS Safety Report 23060240 (Version 2)
Quarter: 2024Q1

REPORT INFORMATION
  Report Type: Report from Study
  Country: JP (occurrence: JP)
  Receive Date: 20231012
  Receipt Date: 20240308
  Transmission Date: 20240409
  Serious: Yes (Death, Other)
  Sender: FDA-Public Use
  Company Number: JP-JNJFOC-20231027339

PATIENT
  Age: 88 Year
  Sex: Male
  Weight: 37.6 kg

DRUGS (20)
  1. SIRTURO [Suspect]
     Active Substance: BEDAQUILINE FUMARATE
     Indication: Pulmonary tuberculosis
     Dosage: DOSE UNKNOWN
     Route: 048
     Dates: start: 20230729, end: 20230829
  2. ISONIAZID [Concomitant]
     Active Substance: ISONIAZID
     Indication: Pulmonary tuberculosis
     Route: 048
     Dates: start: 20230608, end: 20230730
  3. PYRAZINAMIDE [Concomitant]
     Active Substance: PYRAZINAMIDE
     Indication: Pulmonary tuberculosis
     Route: 048
     Dates: start: 20230608, end: 20230730
  4. PYRAZINAMIDE [Concomitant]
     Active Substance: PYRAZINAMIDE
     Dosage: THERAPY START DATE : //2023
     Route: 048
     Dates: end: 20230920
  5. ETHAMBUTOL HYDROCHLORIDE [Concomitant]
     Active Substance: ETHAMBUTOL HYDROCHLORIDE
     Indication: Pulmonary tuberculosis
     Route: 048
     Dates: start: 20230608, end: 20230730
  6. LEVOFLOXACIN HEMIHYDRATE [Concomitant]
     Active Substance: LEVOFLOXACIN
     Indication: Pulmonary tuberculosis
     Dosage: DOSE UNKNOWN
     Route: 048
     Dates: start: 20230608, end: 20230730
  7. LEVOFLOXACIN HEMIHYDRATE [Concomitant]
     Active Substance: LEVOFLOXACIN
     Dosage: DOSE UNKNOWN?THERAPY START DATE  : //2023
     Route: 048
     Dates: end: 20230920
  8. CYCLOSERINE [Concomitant]
     Active Substance: CYCLOSERINE
     Indication: Pulmonary tuberculosis
     Route: 048
     Dates: start: 20230730, end: 20230920
  9. STREPTOMYCIN SULFATE [Concomitant]
     Active Substance: STREPTOMYCIN SULFATE
     Indication: Pulmonary tuberculosis
     Route: 065
     Dates: start: 20230731, end: 20230920
  10. DELAMANID [Concomitant]
     Active Substance: DELAMANID
     Indication: Pulmonary tuberculosis
     Route: 048
     Dates: start: 20230911, end: 20230920
  11. VONOPRAZAN FUMARATE [Concomitant]
     Active Substance: VONOPRAZAN FUMARATE
     Indication: Gastrooesophageal reflux disease
     Route: 048
     Dates: start: 20230920
  12. PRAVASTATIN SODIUM [Concomitant]
     Active Substance: PRAVASTATIN SODIUM
     Indication: Dyslipidaemia
     Route: 048
     Dates: end: 20230920
  13. FUROSEMIDE [Concomitant]
     Active Substance: FUROSEMIDE
     Indication: Cardiac failure chronic
     Route: 048
     Dates: end: 20230920
  14. REBAMIPIDE [Concomitant]
     Active Substance: REBAMIPIDE
     Indication: Gastrooesophageal reflux disease
     Route: 048
     Dates: start: 20230920
  15. CARVEDILOL [Concomitant]
     Active Substance: CARVEDILOL
     Indication: Cardiac failure chronic
     Route: 048
     Dates: end: 20230920
  16. PIMOBENDAN [Concomitant]
     Active Substance: PIMOBENDAN
     Indication: Angina pectoris
     Route: 048
  17. NICORANDIL [Concomitant]
     Active Substance: NICORANDIL
     Indication: Angina pectoris
     Route: 048
     Dates: end: 20230920
  18. ESZOPICLONE [Concomitant]
     Active Substance: ESZOPICLONE
     Indication: Insomnia
     Route: 048
     Dates: end: 20230920
  19. AMEZINIUM METILSULFATE [Concomitant]
     Active Substance: AMEZINIUM METILSULFATE
     Indication: Dialysis
     Route: 048
     Dates: start: 20230920
  20. DROXIDOPA [Concomitant]
     Active Substance: DROXIDOPA
     Indication: Dialysis
     Route: 048
     Dates: end: 20230920

REACTIONS (2)
  - Pulmonary tuberculosis [Fatal]
  - Electrocardiogram QT prolonged [Not Recovered/Not Resolved]

NARRATIVE: CASE EVENT DATE: 20230816
